FAERS Safety Report 5066992-5 (Version None)
Quarter: 2006Q3

REPORT INFORMATION
  Report Type: 
  Country: None (occurrence: None)
  Receive Date: 20060713
  Receipt Date: 20060512
  Transmission Date: 20061208
  Serious: Yes (Other)
  Sender: FDA-Public Use
  Company Number: 248655

PATIENT
  Sex: Female

DRUGS (4)
  1. ACTIVELLA [Suspect]
     Indication: HORMONE REPLACEMENT THERAPY
     Dosage: ORAL
     Route: 048
  2. PREMPRO [Suspect]
     Indication: HORMONE REPLACEMENT THERAPY
     Dates: start: 19970701, end: 20020301
  3. PROVERA [Suspect]
     Indication: HORMONE REPLACEMENT THERAPY
     Dates: start: 19970501, end: 19980301
  4. PREMARIN /00073001/(ESTROGENS CONJUGATED) [Suspect]
     Indication: HORMONE REPLACEMENT THERAPY
     Dates: start: 19970301, end: 19970601

REACTIONS (1)
  - BREAST CANCER [None]
